FAERS Safety Report 21695114 (Version 2)
Quarter: 2022Q4

REPORT INFORMATION
  Report Type: Spontaneous
  Country: BR (occurrence: BR)
  Receive Date: 20221207
  Receipt Date: 20221210
  Transmission Date: 20230112
  Serious: Yes (Other)
  Sender: FDA-Public Use
  Company Number: BR-ABBVIE-4226249

PATIENT
  Age: 26 Year
  Sex: Female

DRUGS (2)
  1. HUMIRA [Suspect]
     Active Substance: ADALIMUMAB
     Indication: Hidradenitis
     Route: 058
     Dates: start: 202101
  2. ADALIMUMAB [Suspect]
     Active Substance: ADALIMUMAB
     Indication: Product used for unknown indication
     Route: 065

REACTIONS (11)
  - Telangiectasia [Unknown]
  - Skin neoplasm bleeding [Unknown]
  - Skin cancer [Unknown]
  - Skin lesion [Unknown]
  - Erythema [Unknown]
  - Pain of skin [Unknown]
  - Body temperature abnormal [Unknown]
  - Vasculitis [Unknown]
  - Rectal haemorrhage [Unknown]
  - Cellulitis [Unknown]
  - Vaginal haemorrhage [Unknown]
